FAERS Safety Report 6841527-2 (Version None)
Quarter: 2010Q3

REPORT INFORMATION
  Report Type: 
  Country: None (occurrence: None)
  Receive Date: 20100714
  Receipt Date: 20080819
  Transmission Date: 20110219
  Serious: No
  Sender: FDA-Public Use
  Company Number: US-PFIZER INC-2007055538

PATIENT
  Sex: Male
  Weight: 113.4 kg

DRUGS (14)
  1. CHANTIX [Suspect]
     Indication: SMOKING CESSATION THERAPY
     Route: 048
     Dates: start: 20070627, end: 20071209
  2. DEPAKOTE [Concomitant]
  3. LEXAPRO [Concomitant]
  4. LORAZEPAM [Concomitant]
  5. LOTREL [Concomitant]
  6. ATENOLOL [Concomitant]
  7. GEODON [Concomitant]
  8. PROTONIX [Concomitant]
  9. CLONAZEPAM [Concomitant]
  10. AMITRIPTYLINE HYDROCHLORIDE [Concomitant]
  11. EFFEXOR XR [Concomitant]
  12. ALL OTHER THERAPEUTIC PRODUCTS [Concomitant]
  13. LAMICTAL [Concomitant]
  14. PAXIL [Concomitant]

REACTIONS (9)
  - ABDOMINAL PAIN LOWER [None]
  - ABDOMINAL PAIN UPPER [None]
  - ABNORMAL DREAMS [None]
  - INTENTIONAL DRUG MISUSE [None]
  - IRRITABLE BOWEL SYNDROME [None]
  - MALAISE [None]
  - NAUSEA [None]
  - NERVOUSNESS [None]
  - VOMITING [None]
